FAERS Safety Report 15765904 (Version 1)
Quarter: 2018Q4

REPORT INFORMATION
  Report Type: Spontaneous
  Country: US (occurrence: US)
  Receive Date: 20181227
  Receipt Date: 20181227
  Transmission Date: 20190205
  Serious: No
  Sender: FDA-Public Use
  Company Number: US-SA-2018SA390701

PATIENT
  Age: 77 Year
  Sex: Female

DRUGS (1)
  1. PRALUENT [Suspect]
     Active Substance: ALIROCUMAB
     Indication: BLOOD CHOLESTEROL INCREASED
     Dosage: 75 MG, QOW
     Route: 058

REACTIONS (10)
  - Pain in extremity [Unknown]
  - Dizziness [Unknown]
  - Malaise [Not Recovered/Not Resolved]
  - Feeling abnormal [Not Recovered/Not Resolved]
  - Rhinorrhoea [Unknown]
  - Headache [Unknown]
  - Vertigo [Unknown]
  - Condition aggravated [Unknown]
  - Chills [Unknown]
  - Chapped lips [Unknown]
